FAERS Safety Report 5419342-6 (Version None)
Quarter: 2007Q3

REPORT INFORMATION
  Report Type: 
  Country: None (occurrence: None)
  Receive Date: 20070815
  Receipt Date: 20070815
  Transmission Date: 20080115
  Serious: Yes (Hospitalization)
  Sender: FDA-Public Use
  Company Number: None

PATIENT
  Age: 53 Year
  Sex: Male

DRUGS (11)
  1. VINCRISTINE [Suspect]
     Indication: B-CELL LYMPHOMA
     Dates: start: 20060308, end: 20060808
  2. HUMALOG [Concomitant]
  3. WELLBUTRIN XL [Concomitant]
  4. TRAZODONE HCL [Concomitant]
  5. NORVASC [Concomitant]
  6. LOPRESSOR [Concomitant]
  7. ZESTRIL [Concomitant]
  8. M.V.I. [Concomitant]
  9. FOLIC ACID [Concomitant]
  10. RANITIDINE [Concomitant]
  11. IBUPROFEN [Concomitant]

REACTIONS (3)
  - B-CELL LYMPHOMA [None]
  - DIABETIC NEUROPATHY [None]
  - NEUROPATHY [None]
